FAERS Safety Report 7564846-3 (Version None)
Quarter: 2011Q2

REPORT INFORMATION
  Report Type: 
  Country: None (occurrence: None)
  Receive Date: 20110622
  Receipt Date: 20110124
  Transmission Date: 20111010
  Serious: Yes (Death)
  Sender: FDA-Public Use
  Company Number: US-MYLANLABS-2011S1000103

PATIENT
  Age: 77 Year
  Sex: Male

DRUGS (11)
  1. SINEMET [Concomitant]
     Dosage: 25MG/100MG
  2. PLAVIX [Concomitant]
  3. VENLAFAXINE [Concomitant]
  4. CLOZAPINE [Suspect]
     Indication: ANXIETY
     Route: 048
     Dates: start: 20050101, end: 20101201
  5. CLOZAPINE [Suspect]
     Indication: AGITATION
     Route: 048
     Dates: start: 20050101, end: 20101201
  6. VITAMIN D [Concomitant]
  7. METOPROLOL TARTRATE [Concomitant]
  8. CLOZAPINE [Suspect]
     Dosage: AT NOON
     Route: 048
     Dates: start: 20050101, end: 20101201
  9. CLOZAPINE [Suspect]
     Dosage: AT NOON
     Route: 048
     Dates: start: 20050101, end: 20101201
  10. TIMOLOL MALEATE [Concomitant]
     Dosage: BOTH EYES
     Route: 047
  11. PEPCID [Concomitant]

REACTIONS (3)
  - DYSPHAGIA [None]
  - DEHYDRATION [None]
  - MALNUTRITION [None]
